FAERS Safety Report 12673979 (Version 1)
Quarter: 2016Q3

REPORT INFORMATION
  Report Type: Report from Study
  Country: US (occurrence: US)
  Receive Date: 20160822
  Receipt Date: 20160822
  Transmission Date: 20161109
  Serious: Yes (Hospitalization)
  Sender: FDA-Public Use
  Company Number: US-PFIZER INC-2016381923

PATIENT
  Age: 76 Year
  Sex: Male

DRUGS (10)
  1. VALACYCLOVIR HCL [Concomitant]
     Active Substance: VALACYCLOVIR HYDROCHLORIDE
     Indication: PROPHYLAXIS
     Dosage: 500 MG, 1 IN 1 D
     Route: 048
     Dates: start: 20160211
  2. VENETOCLAX [Suspect]
     Active Substance: VENETOCLAX
     Dosage: 200 MG, UNK
     Route: 048
     Dates: start: 20160327, end: 20160327
  3. VENETOCLAX [Suspect]
     Active Substance: VENETOCLAX
     Dosage: 300 MG, UNK
     Route: 048
     Dates: start: 20160404
  4. FLUCONAZOLE. [Concomitant]
     Active Substance: FLUCONAZOLE
     Indication: PROPHYLAXIS
     Dosage: 200 MG, 1 IN 1 D
     Route: 048
     Dates: start: 20160401
  5. LEVOFLOXACIN. [Concomitant]
     Active Substance: LEVOFLOXACIN
     Indication: PROPHYLAXIS
     Dosage: 500 MG, 1 IN 1 D
     Route: 048
     Dates: start: 20160316
  6. VENETOCLAX [Suspect]
     Active Substance: VENETOCLAX
     Dosage: 400 MG, UNK
     Route: 048
     Dates: start: 20160328, end: 20160328
  7. VENETOCLAX [Suspect]
     Active Substance: VENETOCLAX
     Dosage: 600 MG, UNK
     Route: 048
     Dates: start: 20160329, end: 20160403
  8. CYTARABINE. [Suspect]
     Active Substance: CYTARABINE
     Indication: ACUTE MYELOID LEUKAEMIA
     Dosage: 20 MG/M2, INJECTION
     Dates: start: 20160324
  9. VENETOCLAX [Suspect]
     Active Substance: VENETOCLAX
     Indication: ACUTE MYELOID LEUKAEMIA
     Dosage: 50 MG, UNK
     Route: 048
     Dates: start: 20160325, end: 20160325
  10. VENETOCLAX [Suspect]
     Active Substance: VENETOCLAX
     Dosage: 100 MG, UNK
     Route: 048
     Dates: start: 20160326, end: 20160326

REACTIONS (2)
  - Febrile neutropenia [Unknown]
  - Respiratory failure [Unknown]

NARRATIVE: CASE EVENT DATE: 20160707
